FAERS Safety Report 25331377 (Version 2)
Quarter: 2025Q2

REPORT INFORMATION
  Report Type: Report from Study
  Country: EG (occurrence: EG)
  Receive Date: 20250519
  Receipt Date: 20250619
  Transmission Date: 20250716
  Serious: Yes (Other)
  Sender: EMD SERONO INC
  Company Number: EG-Merck Healthcare KGaA-2023467875

PATIENT
  Age: 29 Year
  Sex: Male

DRUGS (1)
  1. MAVENCLAD [Suspect]
     Active Substance: CLADRIBINE
     Indication: Multiple sclerosis

REACTIONS (4)
  - Hepatitis C [Not Recovered/Not Resolved]
  - Multiple sclerosis relapse [Recovered/Resolved]
  - Live birth [Recovered/Resolved]
  - Maternal exposure before pregnancy [Recovered/Resolved]

NARRATIVE: CASE EVENT DATE: 20230101
